FAERS Safety Report 21734526 (Version 4)
Quarter: 2023Q2

REPORT INFORMATION
  Report Type: Spontaneous
  Country: US (occurrence: US)
  Receive Date: 20221215
  Receipt Date: 20230612
  Transmission Date: 20230722
  Serious: No
  Sender: FDA-Public Use
  Company Number: US-PFIZER INC-PV202200121282

PATIENT
  Age: 38 Year
  Sex: Female

DRUGS (3)
  1. XELJANZ XR [Suspect]
     Active Substance: TOFACITINIB CITRATE
     Indication: Ankylosing spondylitis
     Dosage: UNK
     Dates: end: 20230329
  2. XELJANZ XR [Suspect]
     Active Substance: TOFACITINIB CITRATE
     Indication: Rheumatoid arthritis
     Dosage: UNK
     Dates: start: 20230421
  3. TALTZ [Concomitant]
     Active Substance: IXEKIZUMAB

REACTIONS (5)
  - Condition aggravated [Unknown]
  - High density lipoprotein increased [Unknown]
  - Drug ineffective [Unknown]
  - Migraine [Recovering/Resolving]
  - Blood cholesterol increased [Unknown]

NARRATIVE: CASE EVENT DATE: 20230501
